FAERS Safety Report 5995377-X (Version None)
Quarter: 2008Q4

REPORT INFORMATION
  Report Type: 
  Country: None (occurrence: None)
  Receive Date: 20081212
  Receipt Date: 20081207
  Transmission Date: 20090506
  Serious: Yes (Life-Threatening, Hospitalization)
  Sender: FDA-Public Use
  Company Number: PHHO2005BG17209

PATIENT
  Sex: Male
  Weight: 95 kg

DRUGS (1)
  1. STI571/CGP57148B T35717+CAPS [Suspect]
     Indication: CHRONIC MYELOID LEUKAEMIA
     Dosage: 800 MG, QD
     Route: 048
     Dates: start: 20050819, end: 20051027

REACTIONS (4)
  - INJURY [None]
  - PYREXIA [None]
  - SEPSIS [None]
  - WOUND INFECTION [None]
